FAERS Safety Report 15957008 (Version 1)
Quarter: 2019Q1

REPORT INFORMATION
  Report Type: Report from Study
  Country: US (occurrence: US)
  Receive Date: 20190213
  Receipt Date: 20190213
  Transmission Date: 20190417
  Serious: Yes (Other)
  Sender: FDA-Public Use
  Company Number: US-EXELIXIS-CABO-19018650

PATIENT
  Sex: Male

DRUGS (8)
  1. VALSARTAN. [Concomitant]
     Active Substance: VALSARTAN
  2. GLIPIZIDE. [Concomitant]
     Active Substance: GLIPIZIDE
  3. ATORVASTATIN CALCIUM. [Concomitant]
     Active Substance: ATORVASTATIN CALCIUM
  4. LATANOPROST. [Concomitant]
     Active Substance: LATANOPROST
  5. CABOMETYX [Suspect]
     Active Substance: CABOZANTINIB S-MALATE
     Indication: RENAL CANCER
     Dosage: 20 MG AND 40 MG, ALTERNATING (1 TABLET EVERY 3 DAYS, ALTERNATE WITH 40 MG TABLET THE OTHER 2 DAYS)
     Route: 048
  6. DORZOLAMIDE HYDROCHLORIDE. [Concomitant]
     Active Substance: DORZOLAMIDE HYDROCHLORIDE
  7. METFORMIN HYDROCHLORIDE. [Concomitant]
     Active Substance: METFORMIN HYDROCHLORIDE
  8. COMBIGAN [Concomitant]
     Active Substance: BRIMONIDINE TARTRATE\TIMOLOL MALEATE

REACTIONS (1)
  - Toe amputation [Unknown]
